FAERS Safety Report 20382189 (Version 1)
Quarter: 2022Q1

REPORT INFORMATION
  Report Type: Spontaneous
  Country: US (occurrence: None)
  Receive Date: 20220127
  Receipt Date: 20220127
  Transmission Date: 20220424
  Serious: Yes (Hospitalization)
  Sender: FDA-Public Use
  Company Number: None

PATIENT
  Sex: Female
  Weight: 78.8 kg

DRUGS (1)
  1. ASPIRIN [Suspect]
     Active Substance: ASPIRIN
     Indication: Product used for unknown indication
     Dates: end: 20211111

REACTIONS (7)
  - Back pain [None]
  - Muscle strain [None]
  - Vertebroplasty [None]
  - Spinal compression fracture [None]
  - Hepatic lesion [None]
  - Metastases to spine [None]
  - Osteopenia [None]

NARRATIVE: CASE EVENT DATE: 20211020
